FAERS Safety Report 17156923 (Version 1)
Quarter: 2019Q4

REPORT INFORMATION
  Report Type: Spontaneous
  Country: SE (occurrence: SE)
  Receive Date: 20191216
  Receipt Date: 20191216
  Transmission Date: 20200122
  Serious: Yes (Hospitalization)
  Sender: FDA-Public Use
  Company Number: SE-TEVA-2019-SE-1151084

PATIENT
  Age: 28 Year
  Sex: Male

DRUGS (2)
  1. LERGIGAN (PROMETHAZINE HYDROCHLORIDE) [Suspect]
     Active Substance: PROMETHAZINE HYDROCHLORIDE
     Dosage: LERGIGAN 25 MG MISSING 70 TABLETS MAYBE OR JUST A FEW PIECES
     Route: 048
     Dates: start: 20190605, end: 20190605
  2. STESOLID [Suspect]
     Active Substance: DIAZEPAM
     Route: 048
     Dates: end: 201906

REACTIONS (3)
  - Intentional overdose [Unknown]
  - Disorganised speech [Unknown]
  - Drug abuse [Unknown]

NARRATIVE: CASE EVENT DATE: 201906
